FAERS Safety Report 6501440-7 (Version None)
Quarter: 2009Q4

REPORT INFORMATION
  Report Type: 
  Country: None (occurrence: None)
  Receive Date: 20091215
  Receipt Date: 20091215
  Transmission Date: 20100525
  Serious: Yes (Hospitalization)
  Sender: FDA-Public Use
  Company Number: None

PATIENT
  Sex: Female
  Weight: 80 kg

DRUGS (2)
  1. GEMCITABINE HCL [Suspect]
     Dosage: 5700 MG
  2. TARCEVA [Suspect]
     Dosage: 3200 MG

REACTIONS (2)
  - CELLULITIS [None]
  - TREATMENT FAILURE [None]
